FAERS Safety Report 9470767 (Version 2)
Quarter: 2015Q1

REPORT INFORMATION
  Report Type: Spontaneous
  Country: US (occurrence: US)
  Receive Date: 20130822
  Receipt Date: 20150305
  Transmission Date: 20150721
  Serious: Yes (Congenital Anomaly, Other)
  Sender: FDA-Public Use
  Company Number: US-ELI_LILLY_AND_COMPANY-US201308005423

PATIENT
  Sex: Female

DRUGS (19)
  1. PROZAC [Suspect]
     Active Substance: FLUOXETINE HYDROCHLORIDE
     Indication: BIPOLAR DISORDER
  2. GLUCOPHAGE [Concomitant]
     Active Substance: METFORMIN HYDROCHLORIDE
     Route: 064
  3. FLUCONAZOLE. [Concomitant]
     Active Substance: FLUCONAZOLE
     Route: 064
  4. PENICILLIN                         /00000901/ [Concomitant]
     Active Substance: PENICILLIN
     Route: 064
  5. TYLENOL [Concomitant]
     Active Substance: ACETAMINOPHEN
     Route: 064
  6. OXYTOCIN. [Concomitant]
     Active Substance: OXYTOCIN
     Route: 064
  7. ZITHROMAX [Concomitant]
     Active Substance: AZITHROMYCIN DIHYDRATE
     Route: 064
  8. LORTAB [Concomitant]
     Active Substance: ACETAMINOPHEN\HYDROCODONE BITARTRATE
     Route: 064
  9. MAGNESIUM SULFATE. [Concomitant]
     Active Substance: MAGNESIUM SULFATE
     Route: 064
  10. HUMULIN NOS [Concomitant]
     Active Substance: INSULIN HUMAN
     Route: 064
  11. PHENERGAN [Concomitant]
     Active Substance: PROMETHAZINE HYDROCHLORIDE
     Route: 064
  12. WELLBUTRIN [Concomitant]
     Active Substance: BUPROPION HYDROCHLORIDE
     Route: 064
  13. HYDROCODONE [Concomitant]
     Active Substance: HYDROCODONE
     Route: 064
  14. HUMALOG [Concomitant]
     Active Substance: INSULIN LISPRO
     Route: 064
  15. AMBIEN [Concomitant]
     Active Substance: ZOLPIDEM TARTRATE
     Route: 064
  16. NYSTATIN. [Concomitant]
     Active Substance: NYSTATIN
     Route: 064
  17. PROZAC [Suspect]
     Active Substance: FLUOXETINE HYDROCHLORIDE
     Indication: DEPRESSION
     Dosage: UNK UNK, UNKNOWN
     Route: 064
  18. MACROBID [Concomitant]
     Active Substance: NITROFURANTOIN\NITROFURANTOIN MONOHYDRATE
     Route: 064
  19. ZOLOFT [Concomitant]
     Active Substance: SERTRALINE HYDROCHLORIDE
     Route: 064

REACTIONS (5)
  - Pulmonary valve incompetence [Unknown]
  - Pulmonary valve stenosis [Recovered/Resolved]
  - Foetal exposure during pregnancy [Recovered/Resolved]
  - Pulmonary artery dilatation [Unknown]
  - Macrosomia [Recovered/Resolved]
